FAERS Safety Report 14570442 (Version 1)
Quarter: 2018Q1

REPORT INFORMATION
  Report Type: Spontaneous
  Country: FR (occurrence: FR)
  Receive Date: 20180226
  Receipt Date: 20180226
  Transmission Date: 20180509
  Serious: Yes (Death, Hospitalization)
  Sender: FDA-Public Use
  Company Number: FR-ROCHE-2073618

PATIENT
  Age: 19 Year
  Sex: Female

DRUGS (11)
  1. STILNOX [Suspect]
     Active Substance: ZOLPIDEM TARTRATE
     Indication: PSYCHIATRIC DECOMPENSATION
     Route: 048
     Dates: start: 20171219, end: 20171227
  2. FLUANXOL [Suspect]
     Active Substance: FLUPENTIXOL
     Indication: PSYCHIATRIC DECOMPENSATION
     Route: 048
     Dates: start: 20171219
  3. ABILIFY MAINTENA [Suspect]
     Active Substance: ARIPIPRAZOLE
     Indication: PSYCHIATRIC DECOMPENSATION
     Route: 030
     Dates: start: 20171206, end: 20171206
  4. SPREGAL (FRANCE) [Concomitant]
     Route: 003
     Dates: start: 20171219, end: 20171219
  5. IMODIUM [Concomitant]
     Active Substance: LOPERAMIDE HYDROCHLORIDE
     Indication: PRODUCT USED FOR UNKNOWN INDICATION
     Route: 048
     Dates: start: 20171220, end: 20171220
  6. ASCABIOL (FRANCE) [Concomitant]
     Route: 003
     Dates: start: 20171219, end: 20171219
  7. LOXAPAC [Concomitant]
     Active Substance: LOXAPINE
     Route: 030
     Dates: start: 20171219, end: 20171219
  8. THERALENE (FRANCE) [Suspect]
     Active Substance: TRIMEPRAZINE
     Indication: PSYCHIATRIC DECOMPENSATION
     Route: 048
     Dates: start: 20171219
  9. ZYPREXA [Suspect]
     Active Substance: OLANZAPINE
     Indication: PSYCHIATRIC DECOMPENSATION
     Route: 048
     Dates: start: 20171220
  10. VALIUM [Suspect]
     Active Substance: DIAZEPAM
     Indication: PSYCHIATRIC DECOMPENSATION
     Route: 048
     Dates: start: 20171219
  11. DEPAKINE [Suspect]
     Active Substance: VALPROATE SODIUM
     Indication: PSYCHIATRIC DECOMPENSATION
     Route: 048
     Dates: start: 20171220

REACTIONS (1)
  - Cardio-respiratory arrest [Fatal]

NARRATIVE: CASE EVENT DATE: 20171227
